FAERS Safety Report 7831643-0 (Version None)
Quarter: 2011Q4

REPORT INFORMATION
  Report Type: 
  Country: None (occurrence: None)
  Receive Date: 20111019
  Receipt Date: 20111003
  Transmission Date: 20120403
  Serious: Yes (Life-Threatening)
  Sender: FDA-Public Use
  Company Number: 019660

PATIENT
  Age: 66 Year
  Sex: Female

DRUGS (2)
  1. NITROPEN (GLYCERYL TRINITRATE) [Concomitant]
  2. MACUGEN [Suspect]
     Indication: AGE-RELATED MACULAR DEGENERATION
     Dosage: 0.3 MG, IN THE RIGHT EYE, OPHTHALMIC
     Route: 047
     Dates: start: 20100205, end: 20100225

REACTIONS (1)
  - CHEST PAIN [None]
